FAERS Safety Report 19841987 (Version 1)
Quarter: 2021Q3

REPORT INFORMATION
  Report Type: Spontaneous
  Country: DE (occurrence: DE)
  Receive Date: 20210916
  Receipt Date: 20210916
  Transmission Date: 20211014
  Serious: Yes (Hospitalization)
  Sender: FDA-Public Use
  Company Number: DE-PFIZER INC-202101143189

PATIENT
  Age: 79 Year
  Sex: Female

DRUGS (9)
  1. EMPAGLIFLOZIN [Concomitant]
     Active Substance: EMPAGLIFLOZIN
     Dosage: 25 MG, 1X/DAY  (1?0?0?0)
     Route: 048
  2. EDOXABAN [Concomitant]
     Active Substance: EDOXABAN TOSYLATE
     Dosage: 60 MG, 1X/DAY (1?0?0?0)
     Route: 048
  3. IVABRADIN [Suspect]
     Active Substance: IVABRADINE
     Dosage: 5 MG, 2X/DAY
     Route: 048
  4. EZETIMIBE + SIMVASTATIN [Concomitant]
     Active Substance: EZETIMIBE\SIMVASTATIN
     Dosage: 1 DF, 1X/DAY
     Route: 048
  5. FUROSEMID [Concomitant]
     Active Substance: FUROSEMIDE
     Dosage: 0.5 DF, 1X/DAY  (0.5?0?0?0)
     Route: 048
  6. BECLOMETASONE DIPROPIONATE/FORMOTEROL FUMARATE [Concomitant]
     Active Substance: BECLOMETHASONE DIPROPIONATE\FORMOTEROL FUMARATE
     Dosage: 6|100 ?G, 2X/DAY (1?0?1?0), SPRAY
     Route: 048
  7. METFORMIN [Concomitant]
     Active Substance: METFORMIN HYDROCHLORIDE
     Dosage: 1000 MG, 1X/DAY ( 0?0?1?0)
     Route: 048
  8. AMLODIPINE BESILATE [Suspect]
     Active Substance: AMLODIPINE BESYLATE
     Dosage: 5 MG, 1X/DAY
     Route: 048
  9. ENTRESTO [Concomitant]
     Active Substance: SACUBITRIL\VALSARTAN
     Dosage: 51|49 MG, 2X/DAY (1?0?1?0)
     Route: 048

REACTIONS (4)
  - Cough [Unknown]
  - Angina pectoris [Unknown]
  - Dyspnoea [Unknown]
  - Oedema peripheral [Unknown]
